FAERS Safety Report 8251411-8 (Version None)
Quarter: 2012Q2

REPORT INFORMATION
  Report Type: 
  Country: None (occurrence: None)
  Receive Date: 20120402
  Receipt Date: 20120326
  Transmission Date: 20120825
  Serious: Yes (Hospitalization)
  Sender: FDA-Public Use
  Company Number: FR-PFIZER INC-2012000096

PATIENT
  Age: 45 Year
  Sex: Male

DRUGS (9)
  1. PEGASYS [Concomitant]
  2. RIBAVIRIN [Concomitant]
  3. FUCIDINE CAP [Suspect]
     Indication: SEPTIC ARTHRITIS STAPHYLOCOCCAL
     Dosage: UNK
     Dates: start: 20111111, end: 20111206
  4. THIOCOLCHICOSIDE [Concomitant]
     Dosage: UNK
     Dates: start: 20111127, end: 20111201
  5. NEXIUM [Concomitant]
  6. TEMGESIC ^SCHERING-PLOUGH^ [Concomitant]
  7. LEVOFLOXACIN [Concomitant]
     Dosage: UNK
     Dates: start: 20111103, end: 20111111
  8. NEORECORMON ^ROCHE^ [Concomitant]
  9. CLINDAMYCIN HCL [Suspect]
     Indication: SEPTIC ARTHRITIS STAPHYLOCOCCAL
     Dosage: UNK
     Dates: start: 20111103, end: 20111206

REACTIONS (1)
  - TOXIC SKIN ERUPTION [None]
